FAERS Safety Report 5018182-X (Version None)
Quarter: 2006Q2

REPORT INFORMATION
  Report Type: 
  Country: None (occurrence: None)
  Receive Date: 20060530
  Receipt Date: 20060516
  Transmission Date: 20061013
  Serious: Yes (Hospitalization)
  Sender: FDA-Public Use
  Company Number: 2006065610

PATIENT
  Age: 71 Year
  Sex: Female

DRUGS (8)
  1. SOMAVERT [Suspect]
     Indication: ACROMEGALY
     Dosage: 10 MG (DAILY)
     Dates: start: 20051101
  2. PROZAC [Concomitant]
  3. FORLAX (MACROGOL) [Concomitant]
  4. KERLONE [Concomitant]
  5. QUINAPRIL HYDROCHLORIDE AND HYDROCHLOROTHIAZDE [Concomitant]
  6. AMLODIPINE [Concomitant]
  7. TAHOR (ATORVASTATIN) [Concomitant]
  8. MIXTARD HUMAN (INSULIN HUMAN) [Concomitant]

REACTIONS (2)
  - CONFUSIONAL STATE [None]
  - HYPOTENSION [None]
